FAERS Safety Report 5897948-8 (Version None)
Quarter: 2008Q3

REPORT INFORMATION
  Report Type: 
  Country: None (occurrence: None)
  Receive Date: 20080925
  Receipt Date: 20080922
  Transmission Date: 20090109
  Serious: Yes (Death)
  Sender: FDA-Public Use
  Company Number: A0749062A

PATIENT
  Age: 73 Year
  Sex: Male

DRUGS (5)
  1. SERETIDE [Suspect]
     Indication: DYSPNOEA
     Dates: start: 20061215, end: 20071031
  2. BEROTEC [Concomitant]
     Dates: start: 19970101, end: 20071031
  3. ATROVENT [Concomitant]
     Dates: start: 19970101, end: 20071031
  4. PANTOPRAZOL [Concomitant]
     Indication: GASTROOESOPHAGEAL REFLUX DISEASE
  5. METHOTREXATE [Concomitant]
     Indication: RHEUMATOID ARTHRITIS

REACTIONS (3)
  - ABDOMINAL SEPSIS [None]
  - ADVERSE EVENT [None]
  - INTESTINAL OBSTRUCTION [None]
